FAERS Safety Report 14813804 (Version 2)
Quarter: 2018Q2

REPORT INFORMATION
  Report Type: Report from Study
  Country: US (occurrence: US)
  Receive Date: 20180426
  Receipt Date: 20180502
  Transmission Date: 20180711
  Serious: No
  Sender: FDA-Public Use
  Company Number: US-PFIZER INC-2018168105

PATIENT
  Sex: Male

DRUGS (3)
  1. CRIZOTINIB [Suspect]
     Active Substance: CRIZOTINIB
     Dosage: 165 MG/M2, UNK
  2. CRIZOTINIB [Suspect]
     Active Substance: CRIZOTINIB
     Indication: INFLAMMATORY MYOFIBROBLASTIC TUMOUR
     Dosage: UNK
     Dates: start: 2012
  3. CRIZOTINIB [Suspect]
     Active Substance: CRIZOTINIB
     Dosage: 300 MG, 2X/DAY

REACTIONS (1)
  - Weight increased [Unknown]
